FAERS Safety Report 15521984 (Version 1)
Quarter: 2018Q4

REPORT INFORMATION
  Report Type: Report from Study
  Country: US (occurrence: US)
  Receive Date: 20181017
  Receipt Date: 20181017
  Transmission Date: 20190205
  Serious: No
  Sender: FDA-Public Use
  Company Number: US-AMGEN-USASL2018124049

PATIENT
  Sex: Male
  Weight: 104.31 kg

DRUGS (2)
  1. REPATHA [Suspect]
     Active Substance: EVOLOCUMAB
     Indication: LIPIDS ABNORMAL
     Dosage: 140 MG, Q2WK
     Route: 058
     Dates: start: 20180730
  2. REPATHA [Suspect]
     Active Substance: EVOLOCUMAB
     Indication: HYPERLIPIDAEMIA

REACTIONS (2)
  - Hypotension [Unknown]
  - Palpitations [Unknown]
